FAERS Safety Report 11417713 (Version 1)
Quarter: 2015Q3

REPORT INFORMATION
  Report Type: Spontaneous
  Country: US (occurrence: US)
  Receive Date: 20150825
  Receipt Date: 20150825
  Transmission Date: 20151125
  Serious: No
  Sender: FDA-Public Use
  Company Number: US-GLAXOSMITHKLINE-US2015GSK120977

PATIENT
  Age: 58 Year
  Sex: Female

DRUGS (1)
  1. TAFINLAR [Suspect]
     Active Substance: DABRAFENIB MESYLATE
     Indication: MALIGNANT HISTIOCYTOSIS
     Dosage: 75 MG, QD
     Route: 048

REACTIONS (3)
  - Nausea [Unknown]
  - Alopecia [Unknown]
  - Dizziness [Unknown]
